FAERS Safety Report 9191485 (Version 2)
Quarter: 2013Q1

REPORT INFORMATION
  Report Type: Report from Study
  Country: US (occurrence: US)
  Receive Date: 20130326
  Receipt Date: 20130327
  Transmission Date: 20140127
  Serious: Yes (Hospitalization, Other)
  Sender: FDA-Public Use
  Company Number: US-ABBOTT-13P-163-1068186-00

PATIENT
  Age: 33 Year
  Sex: Female

DRUGS (3)
  1. HUMIRA [Suspect]
     Indication: COLITIS ULCERATIVE
     Dates: start: 201210, end: 20130105
  2. IMURAN [Concomitant]
     Indication: COLITIS ULCERATIVE
  3. COLAZAL [Concomitant]
     Indication: COLITIS ULCERATIVE

REACTIONS (2)
  - Ectopic pregnancy [Unknown]
  - Infection [Recovered/Resolved]
